FAERS Safety Report 10395254 (Version 3)
Quarter: 2014Q4

REPORT INFORMATION
  Report Type: Spontaneous
  Country: JP (occurrence: JP)
  Receive Date: 20140820
  Receipt Date: 20141128
  Transmission Date: 20150528
  Serious: Yes (Other)
  Sender: FDA-Public Use
  Company Number: PHHY2014JP102638

PATIENT

DRUGS (2)
  1. ZOLEDRONATE [Suspect]
     Active Substance: ZOLEDRONIC ACID
     Indication: METASTASES TO BONE
     Route: 065
  2. ZOLEDRONATE [Suspect]
     Active Substance: ZOLEDRONIC ACID
     Indication: BREAST CANCER METASTATIC

REACTIONS (8)
  - Gingival swelling [Unknown]
  - Soft tissue infection [Unknown]
  - Pain [Unknown]
  - Tenderness [Unknown]
  - Exposed bone in jaw [Unknown]
  - Osteonecrosis of jaw [Unknown]
  - Gingival erythema [Unknown]
  - Gingivitis [Unknown]
